FAERS Safety Report 11802085 (Version 1)
Quarter: 2015Q4

REPORT INFORMATION
  Report Type: Spontaneous
  Country: US (occurrence: US)
  Receive Date: 20151204
  Receipt Date: 20151204
  Transmission Date: 20160305
  Serious: Yes (Hospitalization, Other)
  Sender: FDA-Public Use
  Company Number: US-SA-2015SA193576

PATIENT
  Age: 43 Year
  Sex: Female
  Weight: 72.57 kg

DRUGS (8)
  1. SKELAXIN [Suspect]
     Active Substance: METAXALONE
     Indication: OSTEOARTHRITIS
     Route: 065
  2. LYRICA [Suspect]
     Active Substance: PREGABALIN
     Indication: NERVE INJURY
     Dosage: DOSE AND FREQUENCY: 50 MG ONCE OR TWICE A DAY FOR STARTERS
     Route: 065
  3. SKELAXIN [Suspect]
     Active Substance: METAXALONE
     Indication: SCOLIOSIS
     Route: 065
  4. SKELAXIN [Suspect]
     Active Substance: METAXALONE
     Indication: INTERVERTEBRAL DISC PROTRUSION
     Route: 065
  5. PLAVIX [Suspect]
     Active Substance: CLOPIDOGREL BISULFATE
     Indication: PAIN
     Route: 065
  6. LYRICA [Suspect]
     Active Substance: PREGABALIN
     Indication: NERVE INJURY
     Route: 065
  7. SKELAXIN [Suspect]
     Active Substance: METAXALONE
     Indication: ARTHRITIS
     Route: 065
  8. SKELAXIN [Suspect]
     Active Substance: METAXALONE
     Indication: FIBROMYALGIA
     Route: 065

REACTIONS (8)
  - Gangrene [Unknown]
  - Gait disturbance [Recovered/Resolved with Sequelae]
  - Pain [Not Recovered/Not Resolved]
  - Toe amputation [Unknown]
  - Therapeutic response decreased [Unknown]
  - Thrombosis [Unknown]
  - Arterial disorder [Recovered/Resolved with Sequelae]
  - Ischaemic limb pain [Not Recovered/Not Resolved]

NARRATIVE: CASE EVENT DATE: 201502
